FAERS Safety Report 11328169 (Version 2)
Quarter: 2015Q3

REPORT INFORMATION
  Report Type: Spontaneous
  Country: CA (occurrence: CA)
  Receive Date: 20150731
  Receipt Date: 20150918
  Transmission Date: 20151125
  Serious: Yes (Hospitalization)
  Sender: FDA-Public Use
  Company Number: CA-SA-2015SA110667

PATIENT
  Sex: Female

DRUGS (8)
  1. TAXOTERE [Suspect]
     Active Substance: DOCETAXEL
     Indication: PRODUCT USED FOR UNKNOWN INDICATION
     Dosage: FORM: SOLUTION INTRAVENOUS
     Route: 042
  2. PANTOPRAZOLE [Concomitant]
     Active Substance: PANTOPRAZOLE SODIUM
  3. ZOLADEX [Concomitant]
     Active Substance: GOSERELIN ACETATE
  4. TRASTUZUMAB [Suspect]
     Active Substance: TRASTUZUMAB
     Indication: PRODUCT USED FOR UNKNOWN INDICATION
     Dosage: POWDER FOR SOLUTION
     Route: 065
  5. LETROZOLE. [Concomitant]
     Active Substance: LETROZOLE
  6. GOSERELIN [Concomitant]
     Active Substance: GOSERELIN
  7. METOPROLOL [Concomitant]
     Active Substance: METOPROLOL
  8. MINERALS NOS/VITAMINS NOS [Concomitant]

REACTIONS (2)
  - Condition aggravated [Unknown]
  - Palpitations [Unknown]
